FAERS Safety Report 12893383 (Version 1)
Quarter: 2016Q4

REPORT INFORMATION
  Report Type: Spontaneous
  Country: US (occurrence: US)
  Receive Date: 20161028
  Receipt Date: 20161028
  Transmission Date: 20170207
  Serious: Yes (Hospitalization)
  Sender: FDA-Public Use
  Company Number: US-PFIZER INC-2472907

PATIENT
  Age: 5 Year
  Sex: Female

DRUGS (1)
  1. METHOTREXATE SODIUM. [Suspect]
     Active Substance: METHOTREXATE SODIUM
     Indication: ACUTE LYMPHOCYTIC LEUKAEMIA
     Dosage: 600 MG, UNK
     Route: 037

REACTIONS (6)
  - Back pain [Recovered/Resolved]
  - Seizure [Recovered/Resolved]
  - Coma [Recovered/Resolved]
  - Accidental overdose [Recovered/Resolved]
  - Cardiopulmonary failure [Recovered/Resolved]
  - Tachycardia [Recovered/Resolved]
